FAERS Safety Report 10713833 (Version 1)
Quarter: 2015Q1

REPORT INFORMATION
  Report Type: Spontaneous
  Country: US (occurrence: US)
  Receive Date: 20150115
  Receipt Date: 20150115
  Transmission Date: 20150721
  Serious: No
  Sender: FDA-Public Use
  Company Number: US-PFIZER INC-2015017377

PATIENT
  Age: 55 Year
  Sex: Male
  Weight: 88 kg

DRUGS (3)
  1. PROZAC [Suspect]
     Active Substance: FLUOXETINE HYDROCHLORIDE
     Dosage: UNK
     Dates: start: 2006, end: 2009
  2. CELEBREX [Suspect]
     Active Substance: CELECOXIB
     Dosage: UNK
     Dates: start: 2006, end: 2009
  3. PAXIL [Suspect]
     Active Substance: PAROXETINE HYDROCHLORIDE
     Dosage: UNK
     Dates: start: 2006, end: 2009

REACTIONS (1)
  - Drug ineffective [Unknown]
